FAERS Safety Report 8274066-5 (Version None)
Quarter: 2012Q2

REPORT INFORMATION
  Report Type: 
  Country: None (occurrence: None)
  Receive Date: 20120409
  Receipt Date: 20120328
  Transmission Date: 20120825
  Serious: Yes (Other)
  Sender: FDA-Public Use
  Company Number: USA/USA/12/00233798

PATIENT
  Age: 34 Year
  Sex: Female

DRUGS (2)
  1. ZOLPIDEM TARTRATE [Suspect]
     Indication: INSOMNIA
     Dosage: 2 DOSAGE FORMS, 1 IN 1 D, UNKNOWN
  2. ALPRAZOLAM [Suspect]
     Indication: PANIC ATTACK
     Dosage: 2 DOSAGE FORMS, 1 IN 1 D, UNKNOWN

REACTIONS (10)
  - ROAD TRAFFIC ACCIDENT [None]
  - DYSSTASIA [None]
  - CONFUSIONAL STATE [None]
  - SOMNAMBULISM [None]
  - AMNESIA [None]
  - BALANCE DISORDER [None]
  - DRUG LEVEL INCREASED [None]
  - IMPRISONMENT [None]
  - INSOMNIA [None]
  - PANIC ATTACK [None]
